FAERS Safety Report 8771902 (Version 1)
Quarter: 2012Q4

REPORT INFORMATION
  Report Type: 
  Country: BR (occurrence: BR)
  Receive Date: 20120906
  Receipt Date: 20120906
  Transmission Date: 20130627
  Serious: Yes (Hospitalization)
  Sender: FDA-Public Use
  Company Number: BR-JNJFOC-20120900777

PATIENT
  Age: 0 Year
  Sex: Female
  Weight: 9.25 kg

DRUGS (1)
  1. TYLENOL GOTAS [Suspect]
     Indication: PYREXIA
     Dosage: 9 drops
     Route: 048
     Dates: start: 20120828, end: 20120828

REACTIONS (7)
  - Accidental exposure to product [Recovered/Resolved]
  - Accidental overdose [Recovered/Resolved]
  - Somnolence [Recovered/Resolved]
  - Vomiting [Recovered/Resolved]
  - Nausea [Recovered/Resolved]
  - Choking [Recovered/Resolved]
  - Off label use [Recovered/Resolved]
